FAERS Safety Report 7340443-X (Version None)
Quarter: 2011Q1

REPORT INFORMATION
  Report Type: 
  Country: None (occurrence: None)
  Receive Date: 20110309
  Receipt Date: 20110301
  Transmission Date: 20110831
  Serious: Yes (Other)
  Sender: FDA-Public Use
  Company Number: US-JNJFOC-20101102317

PATIENT
  Sex: Female
  Weight: 68.04 kg

DRUGS (8)
  1. ELAVIL [Concomitant]
     Indication: MIGRAINE
     Route: 065
  2. NEXIUM [Concomitant]
     Indication: PRIMARY CILIARY DYSKINESIA
     Route: 048
  3. NEXIUM [Concomitant]
     Indication: GASTROOESOPHAGEAL REFLUX DISEASE
     Route: 048
  4. TOPAMAX [Suspect]
     Indication: MIGRAINE
     Route: 048
  5. YAZ [Concomitant]
     Indication: CONTRACEPTION
     Route: 048
  6. FIORICET [Concomitant]
     Indication: MIGRAINE
     Route: 065
  7. RHINOCORT [Concomitant]
     Indication: RHINITIS ALLERGIC
  8. NEXIUM [Concomitant]
     Indication: GASTRIC ULCER
     Route: 048

REACTIONS (1)
  - ANGIOEDEMA [None]
